FAERS Safety Report 8922047 (Version 1)
Quarter: 2012Q4

REPORT INFORMATION
  Report Type: 
  Country: ES (occurrence: ES)
  Receive Date: 20121126
  Receipt Date: 20121126
  Transmission Date: 20130627
  Serious: Yes (Hospitalization)
  Sender: FDA-Public Use
  Company Number: ES-SANOFI-AVENTIS-2012SA084265

PATIENT
  Age: 59 Year
  Sex: Female

DRUGS (8)
  1. SEGURIL [Suspect]
     Indication: ASCITES
     Dosage: in the morning
     Route: 065
     Dates: start: 20120521, end: 20120608
  2. SEGURIL [Interacting]
     Indication: ASCITES
     Dosage: form- coded as 245
     Route: 048
     Dates: start: 20120608, end: 20120620
  3. ALDACTONE [Interacting]
     Indication: ASCITES
     Route: 065
     Dates: start: 20120521, end: 20120608
  4. ALDACTONE [Interacting]
     Indication: ASCITES
     Dosage: form- coded as 82
     Route: 048
     Dates: start: 20120608, end: 20120620
  5. PAROXETINE HYDROCHLORIDE [Concomitant]
     Route: 048
     Dates: start: 2004
  6. OMEPRAZOLE [Concomitant]
     Route: 048
     Dates: start: 2010
  7. RIFAXIMIN [Concomitant]
     Route: 048
     Dates: start: 201205
  8. SUMIAL [Concomitant]
     Indication: ACUTE CORONARY SYNDROME
     Route: 048
     Dates: start: 2010

REACTIONS (6)
  - Hyperkalaemia [Recovered/Resolved]
  - Drug interaction [Unknown]
  - Hyponatraemia [Recovered/Resolved]
  - Malaise [Recovered/Resolved]
  - Nausea [Recovered/Resolved]
  - Dizziness [Recovered/Resolved]
